FAERS Safety Report 13538732 (Version 1)
Quarter: 2017Q2

REPORT INFORMATION
  Report Type: Spontaneous
  Country: US (occurrence: US)
  Receive Date: 20170511
  Receipt Date: 20170511
  Transmission Date: 20170830
  Serious: Yes (Other)
  Sender: FDA-Public Use
  Company Number: None

PATIENT
  Age: 70 Year
  Sex: Female

DRUGS (1)
  1. TRAZODONE [Suspect]
     Active Substance: TRAZODONE HYDROCHLORIDE
     Indication: INSOMNIA
     Route: 048
     Dates: start: 20170501, end: 20170510

REACTIONS (5)
  - Gait disturbance [None]
  - Fall [None]
  - Dizziness [None]
  - Feeling drunk [None]
  - Nausea [None]

NARRATIVE: CASE EVENT DATE: 20170501
